FAERS Safety Report 21512183 (Version 2)
Quarter: 2022Q4

REPORT INFORMATION
  Report Type: Spontaneous
  Country: US (occurrence: US)
  Receive Date: 20221027
  Receipt Date: 20221124
  Transmission Date: 20230113
  Serious: Yes (Other)
  Sender: FDA-Public Use
  Company Number: US-Merz Pharmaceuticals GmbH-22-03119

PATIENT
  Age: 59 Year
  Sex: Female

DRUGS (1)
  1. XEOMIN [Suspect]
     Active Substance: INCOBOTULINUMTOXINA
     Indication: Skin cosmetic procedure
     Dates: start: 20220929, end: 20220929

REACTIONS (10)
  - Constipation [Recovering/Resolving]
  - Bladder disorder [Recovering/Resolving]
  - Back pain [Recovering/Resolving]
  - Feeling abnormal [Recovering/Resolving]
  - Hypoaesthesia [Recovering/Resolving]
  - Paraesthesia [Recovering/Resolving]
  - Peripheral coldness [Recovering/Resolving]
  - Headache [Recovering/Resolving]
  - Muscular weakness [Recovering/Resolving]
  - Drug ineffective [Unknown]

NARRATIVE: CASE EVENT DATE: 20220101
